FAERS Safety Report 10378952 (Version 1)
Quarter: 2014Q3

REPORT INFORMATION
  Report Type: Spontaneous
  Country: FR (occurrence: FR)
  Receive Date: 20140812
  Receipt Date: 20140812
  Transmission Date: 20150326
  Serious: Yes (Hospitalization)
  Sender: FDA-Public Use
  Company Number: FR-PFIZER INC-2014221092

PATIENT
  Age: 16 Year
  Sex: Female

DRUGS (16)
  1. ALDACTONE [Suspect]
     Active Substance: SPIRONOLACTONE
     Dosage: 40 MG, 2X/DAY
     Dates: start: 20140620
  2. CELLCEPT [Suspect]
     Active Substance: MYCOPHENOLATE MOFETIL\MYCOPHENOLATE MOFETIL HYDROCHLORIDE
     Dosage: 1 G, 4X/DAY
     Dates: start: 20140620, end: 20140716
  3. NEORAL [Concomitant]
     Active Substance: CYCLOSPORINE
     Dosage: 60 MG, DAILY
  4. SOLUPRED [Concomitant]
     Active Substance: PREDNISOLONE
     Dosage: 50 MG, 1X/DAY
     Dates: end: 20140607
  5. MELATONIN [Concomitant]
     Active Substance: MELATONIN
  6. NEORAL [Concomitant]
     Active Substance: CYCLOSPORINE
     Dosage: 0.6 ML, 2X/DAY
  7. CALCIUM [Concomitant]
     Active Substance: CALCIUM
     Dosage: 500 MG, 1X/DAY
  8. VITAMIN A [Concomitant]
     Active Substance: VITAMIN A
  9. ALDACTONE [Suspect]
     Active Substance: SPIRONOLACTONE
     Dosage: 25 MG, DAILY
     Dates: end: 20140620
  10. CELLCEPT [Suspect]
     Active Substance: MYCOPHENOLATE MOFETIL\MYCOPHENOLATE MOFETIL HYDROCHLORIDE
     Dosage: 1 G, 2X/DAY
     Dates: start: 20140607, end: 20140620
  11. ENTOCORT [Concomitant]
     Active Substance: BUDESONIDE
     Dosage: 3 MG, DAILY
  12. VITAMIN M [Concomitant]
  13. IVERMECTIN [Concomitant]
     Active Substance: IVERMECTIN
  14. VITAMIN K [Concomitant]
     Active Substance: PHYTONADIONE
     Dosage: 10 MG, UNK
  15. TITANOREINE [Concomitant]
     Active Substance: CARRAGEENAN\TITANIUM\ZINC
     Dosage: 3 TIMES DAILY UNTIL COMPLETE DISAPPEARANCE OF FISSURE
  16. UVESTEROL [Concomitant]
     Dosage: 1 DF, 1X/DAY

REACTIONS (4)
  - Anaemia [Unknown]
  - Lymphopenia [Recovered/Resolved]
  - Renal failure [Recovered/Resolved]
  - Thrombocytopenia [Unknown]

NARRATIVE: CASE EVENT DATE: 20140716
